FAERS Safety Report 12880166 (Version 1)
Quarter: 2016Q4

REPORT INFORMATION
  Report Type: Spontaneous
  Country: US (occurrence: US)
  Receive Date: 20161021
  Receipt Date: 20161021
  Transmission Date: 20170207
  Serious: No
  Sender: FDA-Public Use
  Company Number: None

PATIENT
  Age: 58 Year
  Sex: Female

DRUGS (1)
  1. IBRANCE [Suspect]
     Active Substance: PALBOCICLIB
     Indication: BREAST CANCER
     Dosage: 75MG ONCE DAILY FOR 21 DAYS ON, BY MOUTH
     Route: 048
     Dates: start: 20160701

REACTIONS (2)
  - Therapy change [None]
  - White blood cell disorder [None]

NARRATIVE: CASE EVENT DATE: 20161013
